FAERS Safety Report 8803334 (Version 1)
Quarter: 2012Q4

REPORT INFORMATION
  Report Type: 
  Country: BR (occurrence: BR)
  Receive Date: 20120924
  Receipt Date: 20120924
  Transmission Date: 20130627
  Serious: Yes (Other)
  Sender: FDA-Public Use
  Company Number: BR-JNJFOC-20120811990

PATIENT
  Sex: Male
  Weight: 75 kg

DRUGS (3)
  1. REMICADE [Suspect]
     Indication: PSORIASIS
     Route: 042
     Dates: start: 201205
  2. REMICADE [Suspect]
     Indication: PSORIASIS
     Route: 042
     Dates: start: 20120719
  3. REMICADE [Suspect]
     Indication: PSORIASIS
     Route: 042
     Dates: start: 200906, end: 201205

REACTIONS (2)
  - Tuberculosis [Not Recovered/Not Resolved]
  - Psoriasis [Unknown]
